FAERS Safety Report 5656676-4 (Version None)
Quarter: 2008Q1

REPORT INFORMATION
  Report Type: 
  Country: None (occurrence: None)
  Receive Date: 20080310
  Receipt Date: 20080225
  Transmission Date: 20080703
  Serious: Yes (Other)
  Sender: FDA-Public Use
  Company Number: US-TYCO HEALTHCARE/MALLINCKRODT-T200800331

PATIENT

DRUGS (1)
  1. OPTIRAY 300 [Suspect]
     Indication: CATHETERISATION CARDIAC
     Dosage: UNK, SINGLE
     Dates: start: 20080213, end: 20080213

REACTIONS (2)
  - AIR EMBOLISM [None]
  - DRUG ADMINISTRATION ERROR [None]
